FAERS Safety Report 12043879 (Version 1)
Quarter: 2016Q1

REPORT INFORMATION
  Report Type: Spontaneous
  Country: FR (occurrence: FR)
  Receive Date: 20160208
  Receipt Date: 20160208
  Transmission Date: 20160526
  Serious: Yes (Other)
  Sender: FDA-Public Use
  Company Number: FR-BAXTER-2016BAX005488

PATIENT
  Age: 2 Year
  Sex: Male
  Weight: 12 kg

DRUGS (13)
  1. CELLTOP 100 MG/5 ML, SOLUTION INJECTABLE POUR PERFUSION [Suspect]
     Active Substance: ETOPOSIDE
     Dosage: CCE PROTOCOL; SECOND COURSE
     Route: 065
     Dates: start: 20151207
  2. ENDOXAN 2000 MG, LYOPHILISAT POUR SOLUTION INJECTABLE [Suspect]
     Active Substance: CYCLOPHOSPHAMIDE
     Indication: RECURRENT CANCER
     Dosage: CCE PROTOCOL; FIRST OND COURSE
     Route: 065
     Dates: start: 20151021
  3. ENDOXAN 2000 MG, LYOPHILISAT POUR SOLUTION INJECTABLE [Suspect]
     Active Substance: CYCLOPHOSPHAMIDE
     Indication: NEPHROBLASTOMA
     Dosage: CCE PROTOCOL; SECOND COURSE
     Route: 065
     Dates: start: 20151207
  4. CARBOPLATIN. [Suspect]
     Active Substance: CARBOPLATIN
     Indication: NEPHROBLASTOMA
     Dosage: CCE PROTOCOL; FIRST COURSE
     Route: 065
     Dates: start: 20151021
  5. CELLTOP 100 MG/5 ML, SOLUTION INJECTABLE POUR PERFUSION [Suspect]
     Active Substance: ETOPOSIDE
     Indication: NEPHROBLASTOMA
     Dosage: CCE PROTOCOL; FIRST COURSE
     Route: 065
     Dates: start: 20151021
  6. HOLOXAN 1000 MG, POUDRE POUR SOLUTION INJECTABLE [Suspect]
     Active Substance: IFOSFAMIDE
     Dosage: D2 OF ICE PROTOCOL
     Route: 042
     Dates: start: 20160113
  7. HOLOXAN 1000 MG, POUDRE POUR SOLUTION INJECTABLE [Suspect]
     Active Substance: IFOSFAMIDE
     Indication: NEPHROBLASTOMA
     Dosage: ICE PROTOCOL; RECEIVED 2 G IN 3 HOURS
     Route: 042
     Dates: start: 20160111, end: 20160111
  8. CARBOPLATIN. [Suspect]
     Active Substance: CARBOPLATIN
     Indication: RECURRENT CANCER
     Dosage: ICE PROTOCOL; FIRST COURSE
     Route: 065
     Dates: start: 20150922
  9. MESNA. [Concomitant]
     Active Substance: MESNA
     Indication: PROPHYLAXIS
     Dosage: DOUBLING THE DOSAGE
     Route: 065
     Dates: start: 20160112
  10. CELLTOP 100 MG/5 ML, SOLUTION INJECTABLE POUR PERFUSION [Suspect]
     Active Substance: ETOPOSIDE
     Indication: RECURRENT CANCER
     Dosage: ICE PROTOCOL; FIRST COURSE
     Route: 065
     Dates: start: 20150922
  11. HOLOXAN 1000 MG, POUDRE POUR SOLUTION INJECTABLE [Suspect]
     Active Substance: IFOSFAMIDE
     Indication: RECURRENT CANCER
     Dosage: ICE PROTOCOL; FIRST COURSE
     Route: 042
     Dates: start: 20150922
  12. CARBOPLATIN. [Suspect]
     Active Substance: CARBOPLATIN
     Dosage: CCE PROTOCOL; SECOND COURSE
     Route: 065
     Dates: start: 20151207
  13. METHYLENE BLUE. [Concomitant]
     Active Substance: METHYLENE BLUE
     Indication: PROPHYLAXIS
     Route: 065
     Dates: start: 20160112

REACTIONS (3)
  - Accidental overdose [Recovered/Resolved]
  - Leukopenia [Unknown]
  - Anaemia [Unknown]

NARRATIVE: CASE EVENT DATE: 20160111
